FAERS Safety Report 12811134 (Version 1)
Quarter: 2016Q4

REPORT INFORMATION
  Report Type: Spontaneous
  Country: US (occurrence: US)
  Receive Date: 20161005
  Receipt Date: 20161005
  Transmission Date: 20170207
  Serious: Yes (Other)
  Sender: FDA-Public Use
  Company Number: None

PATIENT
  Age: 76 Year
  Sex: Female
  Weight: 80.74 kg

DRUGS (10)
  1. GEODON [Concomitant]
     Active Substance: ZIPRASIDONE HYDROCHLORIDE\ZIPRASIDONE MESYLATE
  2. CALCIUM PLUS D3 [Concomitant]
  3. ASPIRIN. [Concomitant]
     Active Substance: ASPIRIN
  4. ZANTAC [Suspect]
     Active Substance: RANITIDINE HYDROCHLORIDE
     Indication: GASTROOESOPHAGEAL REFLUX DISEASE
     Dosage: ?          QUANTITY:III)? ^ SOME SLUR?^ML NR;?
     Route: 048
     Dates: start: 20160705, end: 20160909
  5. MULTIVITAM [Concomitant]
  6. ATENOLOL. [Concomitant]
     Active Substance: ATENOLOL
  7. PEPCID [Concomitant]
     Active Substance: FAMOTIDINE
  8. RANITIDINE 150MG AMNEAL PHARMAC [Suspect]
     Active Substance: RANITIDINE
  9. SIMVISTATIN [Concomitant]
     Active Substance: SIMVASTATIN
  10. NIFEDIPINE. [Concomitant]
     Active Substance: NIFEDIPINE

REACTIONS (3)
  - Product taste abnormal [None]
  - Nausea [None]
  - Dysgeusia [None]

NARRATIVE: CASE EVENT DATE: 20160705
